FAERS Safety Report 15689522 (Version 1)
Quarter: 2018Q4

REPORT INFORMATION
  Report Type: Spontaneous
  Country: US (occurrence: US)
  Receive Date: 20181205
  Receipt Date: 20181205
  Transmission Date: 20190205
  Serious: No
  Sender: FDA-Public Use
  Company Number: US-VIIV HEALTHCARE LIMITED-US2018GSK219282

PATIENT
  Age: 39 Year
  Sex: Male

DRUGS (4)
  1. ACETAMINOPHEN. [Suspect]
     Active Substance: ACETAMINOPHEN
     Indication: MYALGIA
  2. BIKTARVY [Concomitant]
     Active Substance: BICTEGRAVIR SODIUM\EMTRICITABINE\TENOFOVIR ALAFENAMIDE FUMARATE
     Indication: HIV INFECTION
     Dosage: UNK
     Dates: start: 20181116
  3. JULUCA [Suspect]
     Active Substance: DOLUTEGRAVIR SODIUM\RILPIVIRINE HYDROCHLORIDE
     Indication: HIV INFECTION
     Dosage: UNK
     Dates: start: 20180609, end: 20181116
  4. PENICILLIN [Concomitant]
     Active Substance: PENICILLIN
     Indication: SECONDARY SYPHILIS
     Dosage: UNK
     Dates: start: 201806

REACTIONS (11)
  - Myalgia [Recovering/Resolving]
  - Viral myositis [Unknown]
  - Viral infection [Unknown]
  - Limb discomfort [Recovering/Resolving]
  - Aspartate aminotransferase increased [Unknown]
  - Transaminases increased [Unknown]
  - Fatigue [Recovering/Resolving]
  - Blood creatine phosphokinase increased [Unknown]
  - Rhinorrhoea [Recovering/Resolving]
  - Alanine aminotransferase increased [Unknown]
  - Cough [Recovering/Resolving]

NARRATIVE: CASE EVENT DATE: 20181116
